FAERS Safety Report 10070585 (Version 3)
Quarter: 2014Q2

REPORT INFORMATION
  Report Type: Report from Study
  Country: MW (occurrence: MW)
  Receive Date: 20140410
  Receipt Date: 20140515
  Transmission Date: 20141212
  Serious: Yes (Hospitalization)
  Sender: FDA-Public Use
  Company Number: MW-BRISTOL-MYERS SQUIBB COMPANY-20595633

PATIENT
  Age: 32 Year
  Sex: Male
  Weight: 65.8 kg

DRUGS (4)
  1. STOCRIN CAPS [Suspect]
     Indication: HIV INFECTION
     Route: 048
     Dates: start: 20140219, end: 20140226
  2. EMTRICITABINE/TENOFOVIR DISOPROXIL FUMARATE [Suspect]
     Indication: HIV INFECTION
     Dosage: 1 DF= 200/300 MG
     Route: 048
     Dates: start: 20140219, end: 20140226
  3. RIFAMPICIN + ISONIAZID + PYRAZINAMIDE + ETHAMBUTOL [Suspect]
     Indication: TUBERCULOSIS
     Dosage: 1 DF= 150/75/275/400 MG
     Route: 048
     Dates: start: 20140219, end: 20140226
  4. RIFAMPICIN + ISONIAZID + PYRAZINAMIDE + ETHAMBUTOL [Suspect]
     Indication: HIV INFECTION
     Dosage: 1 DF= 150/75/275/400 MG
     Route: 048
     Dates: start: 20140219, end: 20140226

REACTIONS (2)
  - Bacterial sepsis [Not Recovered/Not Resolved]
  - Lymph node tuberculosis [Recovering/Resolving]
